FAERS Safety Report 5593919-X (Version None)
Quarter: 2008Q1

REPORT INFORMATION
  Report Type: 
  Country: None (occurrence: None)
  Receive Date: 20080116
  Receipt Date: 20080111
  Transmission Date: 20080703
  Serious: Yes (Death, Life-Threatening)
  Sender: FDA-Public Use
  Company Number: DE-BAXTER-2007BH008261

PATIENT
  Age: 22 Year
  Sex: Female

DRUGS (9)
  1. HUMAN ALBUMIN IMMUNO 20% [Suspect]
     Indication: BLOOD OSMOLARITY DECREASED
     Route: 042
     Dates: start: 20070717, end: 20070717
  2. HEPARIN [Concomitant]
  3. MORPHINE [Concomitant]
  4. NOREPINEPHRINE BITARTRATE [Concomitant]
     Indication: SEPSIS
  5. LASIX [Concomitant]
     Indication: SEPSIS
  6. PIPERACILLIN [Concomitant]
     Indication: SEPSIS
     Dates: start: 20070717, end: 20070719
  7. COMBACTAM [Concomitant]
     Indication: SEPSIS
     Dates: start: 20070717, end: 20070719
  8. PROPOFOL [Concomitant]
     Indication: SEPSIS
  9. GENTAMICIN SULFATE [Concomitant]
     Indication: SEPSIS
     Dates: start: 20070716, end: 20070719

REACTIONS (3)
  - BLOOD PRESSURE DECREASED [None]
  - CARDIAC ARREST [None]
  - DRUG PHYSIOLOGIC INCOMPATIBILITY [None]
